FAERS Safety Report 7956410-9 (Version None)
Quarter: 2011Q4

REPORT INFORMATION
  Report Type: 
  Country: None (occurrence: None)
  Receive Date: 20111205
  Receipt Date: 20111121
  Transmission Date: 20120403
  Serious: Yes (Hospitalization)
  Sender: FDA-Public Use
  Company Number: FR-JNJFOC-20101203665

PATIENT
  Sex: Female
  Weight: 42 kg

DRUGS (7)
  1. AZATHIOPRINE [Concomitant]
  2. REMICADE [Suspect]
     Indication: CROHN'S DISEASE
     Route: 042
     Dates: start: 20090430
  3. REMICADE [Suspect]
     Route: 042
     Dates: start: 20100529
  4. ALUMINUM HYDROXIDE AND MAGNESIUM TRISILICATE [Concomitant]
  5. ANTIBIOTICS UNSPECIFIED [Concomitant]
     Indication: CROHN'S DISEASE
  6. CALCIUM CARBONATE [Concomitant]
  7. REMICADE [Suspect]
     Route: 042
     Dates: start: 20100408

REACTIONS (2)
  - ILEAL STENOSIS [None]
  - CROHN'S DISEASE [None]
